FAERS Safety Report 13473933 (Version 2)
Quarter: 2017Q2

REPORT INFORMATION
  Report Type: Spontaneous
  Country: US (occurrence: US)
  Receive Date: 20170424
  Receipt Date: 20170613
  Transmission Date: 20170830
  Serious: Yes (Hospitalization)
  Sender: FDA-Public Use
  Company Number: US-ALKERMES INC.-ALK-2017-001429

PATIENT
  Age: 34 Year
  Sex: Female
  Weight: 113.38 kg

DRUGS (1)
  1. ARISTADA [Suspect]
     Active Substance: ARIPIPRAZOLE LAUROXIL
     Indication: SCHIZOPHRENIA
     Dosage: 882 MG, QMO
     Route: 030
     Dates: start: 201701

REACTIONS (6)
  - Wrong technique in product usage process [Recovered/Resolved]
  - Injection site pain [Recovered/Resolved]
  - Overdose [Recovered/Resolved]
  - Injection site swelling [Recovered/Resolved]
  - Head discomfort [Recovered/Resolved]
  - Injection site mass [Recovered/Resolved]

NARRATIVE: CASE EVENT DATE: 20170410
